FAERS Safety Report 11437234 (Version 1)
Quarter: 2015Q3

REPORT INFORMATION
  Report Type: Spontaneous
  Country: US (occurrence: US)
  Receive Date: 20150821
  Receipt Date: 20150821
  Transmission Date: 20151125
  Serious: No
  Sender: FDA-Public Use
  Company Number: US-ELI_LILLY_AND_COMPANY-US200703004066

PATIENT
  Age: 55 Year
  Sex: Female
  Weight: 68.03 kg

DRUGS (6)
  1. REMERON [Concomitant]
     Active Substance: MIRTAZAPINE
     Indication: SLEEP DISORDER
  2. RISPERDAL [Concomitant]
     Active Substance: RISPERIDONE
     Indication: SLEEP DISORDER
  3. BUSPAR [Concomitant]
     Active Substance: BUSPIRONE HYDROCHLORIDE
     Indication: SLEEP DISORDER
  4. AMITRIPTYLINE [Concomitant]
     Active Substance: AMITRIPTYLINE
     Indication: SLEEP DISORDER
  5. CYMBALTA [Suspect]
     Active Substance: DULOXETINE HYDROCHLORIDE
     Indication: THINKING ABNORMAL
     Dosage: 30 MG, UNK
     Route: 048
  6. CYMBALTA [Suspect]
     Active Substance: DULOXETINE HYDROCHLORIDE
     Dosage: 20 MG, UNK
     Route: 048

REACTIONS (3)
  - Drug effect increased [Not Recovered/Not Resolved]
  - Drug effect decreased [Not Recovered/Not Resolved]
  - Headache [Recovering/Resolving]
